FAERS Safety Report 11905556 (Version 1)
Quarter: 2016Q1

REPORT INFORMATION
  Report Type: Spontaneous
  Country: BR (occurrence: BR)
  Receive Date: 20160109
  Receipt Date: 20160109
  Transmission Date: 20160526
  Serious: Yes (Other)
  Sender: FDA-Public Use
  Company Number: BR-ACCORD-036756

PATIENT
  Age: 74 Year
  Sex: Male

DRUGS (1)
  1. FLUOROURACIL. [Suspect]
     Active Substance: FLUOROURACIL
     Indication: CORNEAL EPITHELIUM DEFECT
     Dosage: INTRACAMERAL INJECTION OF 5-FU

REACTIONS (3)
  - Ulcerative keratitis [Recovered/Resolved]
  - Product use issue [Unknown]
  - Off label use [Unknown]
